FAERS Safety Report 8739988 (Version 2)
Quarter: 2012Q4

REPORT INFORMATION
  Report Type: 
  Country: US (occurrence: US)
  Receive Date: 20120823
  Receipt Date: 20121008
  Transmission Date: 20130627
  Serious: Yes (Other)
  Sender: FDA-Public Use
  Company Number: US-FRI-1000037865

PATIENT
  Age: 41 Year
  Sex: Female

DRUGS (7)
  1. ARMOUR THYROID [Suspect]
     Indication: HYPOTHYROIDISM
     Dosage: 30 mg
     Route: 048
     Dates: start: 2012, end: 201207
  2. ARMOUR THYROID [Suspect]
     Indication: HYPOTHYROIDISM
     Dosage: 45 mg
     Route: 048
     Dates: start: 201207, end: 20120731
  3. ARMOUR THYROID [Suspect]
     Indication: HYPOTHYROIDISM
     Dosage: 60 mg
     Dates: start: 20120817, end: 201209
  4. ARMOUR THYROID [Suspect]
     Dosage: 45 mg
     Dates: start: 201209
  5. NOVOCAIN [Suspect]
     Indication: DENTAL CARE
     Dates: start: 201209, end: 201209
  6. RITALIN [Concomitant]
     Indication: NARCOLEPSY
     Dosage: 5 mg
  7. PROVIGIL [Concomitant]
     Indication: NARCOLEPSY
     Dosage: 100-200 mg QD

REACTIONS (3)
  - Tooth infection [Not Recovered/Not Resolved]
  - Fatigue [Not Recovered/Not Resolved]
  - Trismus [Not Recovered/Not Resolved]
